FAERS Safety Report 23226634 (Version 1)
Quarter: 2023Q4

REPORT INFORMATION
  Report Type: Spontaneous
  Country: US (occurrence: US)
  Receive Date: 20231124
  Receipt Date: 20231124
  Transmission Date: 20240109
  Serious: No
  Sender: FDA-Public Use
  Company Number: US-ALEMBIC PHARMACUETICALS LIMITED-2023SCAL001092

PATIENT

DRUGS (8)
  1. LIDOCAINE [Suspect]
     Active Substance: LIDOCAINE
     Indication: Infusion site pain
     Dosage: UNK
     Route: 065
  2. TREPROSTINIL SODIUM [Concomitant]
     Active Substance: TREPROSTINIL SODIUM
     Indication: Pulmonary arterial hypertension
     Dosage: 0.04881 ?G/KG
     Route: 058
     Dates: start: 202212
  3. TREPROSTINIL SODIUM [Concomitant]
     Active Substance: TREPROSTINIL SODIUM
     Dosage: 0.05753 ?G/KG
     Route: 058
  4. TREPROSTINIL SODIUM [Concomitant]
     Active Substance: TREPROSTINIL SODIUM
     Dosage: 0.05927 ?G/KG
     Route: 058
  5. TREPROSTINIL SODIUM [Concomitant]
     Active Substance: TREPROSTINIL SODIUM
     Dosage: UNK
     Route: 058
     Dates: start: 202212
  6. OPSUMIT [Concomitant]
     Active Substance: MACITENTAN
     Indication: Product used for unknown indication
     Dosage: UNK
     Route: 065
  7. TADALAFIL [Concomitant]
     Active Substance: TADALAFIL
     Indication: Product used for unknown indication
     Dosage: UNK
     Route: 065
  8. TYLENOL [Concomitant]
     Active Substance: ACETAMINOPHEN
     Indication: Infusion site pain
     Dosage: UNK
     Route: 065

REACTIONS (1)
  - Therapeutic response decreased [Unknown]
